FAERS Safety Report 24344374 (Version 1)
Quarter: 2024Q3

REPORT INFORMATION
  Report Type: Spontaneous
  Country: US (occurrence: None)
  Receive Date: 20240919
  Receipt Date: 20240919
  Transmission Date: 20241016
  Serious: Yes (Hospitalization, Other)
  Sender: Public
  Company Number: None

PATIENT
  Age: 19 Year
  Sex: Female
  Weight: 54 kg

DRUGS (3)
  1. MEDROXYPROGESTERONE ACETATE [Suspect]
     Active Substance: MEDROXYPROGESTERONE ACETATE
     Indication: Contraception
     Dosage: OTHER QUANTITY : 1 INJECTION(S);?OTHER FREQUENCY : EVERY 3 MONTHS;?
     Route: 058
     Dates: start: 20230604, end: 20230904
  2. SERTRALINE [Concomitant]
     Active Substance: SERTRALINE HYDROCHLORIDE
  3. HYDROXYZINE [Concomitant]
     Active Substance: HYDROXYZINE HYDROCHLORIDE

REACTIONS (8)
  - Syncope [None]
  - Seizure [None]
  - Loss of consciousness [None]
  - Nausea [None]
  - Tremor [None]
  - Feeling hot [None]
  - Hypoaesthesia [None]
  - Musculoskeletal stiffness [None]

NARRATIVE: CASE EVENT DATE: 20240917
